FAERS Safety Report 14933828 (Version 1)
Quarter: 2018Q2

REPORT INFORMATION
  Report Type: Spontaneous
  Country: US (occurrence: US)
  Receive Date: 20180524
  Receipt Date: 20180524
  Transmission Date: 20180711
  Serious: Yes (Life-Threatening, Hospitalization, Other)
  Sender: FDA-Public Use
  Company Number: US-BRISTOL-MYERS SQUIBB COMPANY-BMS-2018-044039

PATIENT
  Age: 68 Year
  Sex: Female
  Weight: 81.64 kg

DRUGS (1)
  1. ORENCIA [Suspect]
     Active Substance: ABATACEPT
     Indication: RHEUMATOID ARTHRITIS
     Dosage: 1
     Route: 065
     Dates: start: 20180504

REACTIONS (8)
  - Blood pressure decreased [Unknown]
  - Seizure [Unknown]
  - Diarrhoea [Unknown]
  - Feeling abnormal [Unknown]
  - Cough [Unknown]
  - Cystitis [Unknown]
  - Gastric disorder [Unknown]
  - Pyrexia [Unknown]

NARRATIVE: CASE EVENT DATE: 201805
